FAERS Safety Report 5242399-2 (Version None)
Quarter: 2007Q1

REPORT INFORMATION
  Report Type: 
  Country: None (occurrence: None)
  Receive Date: 20070216
  Receipt Date: 20070216
  Transmission Date: 20070707
  Serious: Yes (Hospitalization)
  Sender: FDA-Public Use
  Company Number: None

PATIENT
  Age: 51 Year
  Sex: Male

DRUGS (6)
  1. RIFAMPIN [Suspect]
     Dosage: 300 MG BID
     Dates: start: 20060321
  2. ETHAMBUTOL HYDROCHLORIDE [Suspect]
     Indication: TUBERCULOSIS
     Dosage: 500 MG TID
     Dates: start: 20060321
  3. CLARITHROMYCIN [Suspect]
     Indication: TUBERCULOSIS
     Dosage: 600 MG BID
     Dates: start: 20060321
  4. CIPRO [Concomitant]
  5. METOPROLOL SUCCINATE [Concomitant]
  6. TRAMADOL HCL [Concomitant]

REACTIONS (1)
  - MYALGIA [None]
